FAERS Safety Report 21139692 (Version 1)
Quarter: 2022Q3

REPORT INFORMATION
  Report Type: Report from Study
  Country: US (occurrence: US)
  Receive Date: 20220727
  Receipt Date: 20220727
  Transmission Date: 20221026
  Serious: Yes (Hospitalization)
  Sender: FDA-Public Use
  Company Number: US-ABBVIE-22K-163-4482833-00

PATIENT
  Age: 86 Year
  Sex: Male

DRUGS (1)
  1. RINVOQ [Suspect]
     Active Substance: UPADACITINIB
     Indication: Rheumatoid arthritis
     Dosage: EXTENDED RELEASE
     Route: 048
     Dates: start: 20210927

REACTIONS (2)
  - Large intestine perforation [Unknown]
  - Diverticulitis intestinal haemorrhagic [Recovered/Resolved]

NARRATIVE: CASE EVENT DATE: 20220501
